FAERS Safety Report 4704632-2 (Version None)
Quarter: 2005Q2

REPORT INFORMATION
  Report Type: 
  Country: None (occurrence: None)
  Receive Date: 20050629
  Receipt Date: 20050622
  Transmission Date: 20051028
  Serious: Yes (Other)
  Sender: FDA-Public Use
  Company Number: 032-4

PATIENT
  Age: 69 Year
  Sex: Female

DRUGS (4)
  1. TEVETEN [Suspect]
     Indication: HYPERTENSION
     Dosage: 600 MG QD PO
     Route: 048
     Dates: start: 20050114, end: 20050315
  2. SIMVASTTIN [Concomitant]
  3. HYPERICIN [Concomitant]
  4. BISOPROLOL [Concomitant]

REACTIONS (1)
  - HERPES ZOSTER [None]
